FAERS Safety Report 6676160-9 (Version None)
Quarter: 2010Q2

REPORT INFORMATION
  Report Type: 
  Country: None (occurrence: None)
  Receive Date: 20100412
  Receipt Date: 20100326
  Transmission Date: 20101027
  Serious: Yes (Other)
  Sender: FDA-Public Use
  Company Number: US-JNJFOC-20100308362

PATIENT
  Age: 69 Year
  Sex: Female
  Weight: 54.43 kg

DRUGS (9)
  1. SIMPONI [Suspect]
     Indication: RHEUMATOID ARTHRITIS
     Route: 058
  2. SIMPONI [Suspect]
     Route: 058
  3. ATENOLOL [Concomitant]
  4. MELOXICAM [Concomitant]
  5. FOLIC ACID [Concomitant]
  6. LOVAZA [Concomitant]
  7. METHOTREXATE [Concomitant]
  8. CRESTOR [Concomitant]
  9. NEXIUM [Concomitant]

REACTIONS (4)
  - DEVICE MALFUNCTION [None]
  - INAPPROPRIATE SCHEDULE OF DRUG ADMINISTRATION [None]
  - RHEUMATOID ARTHRITIS [None]
  - TONSILLAR DISORDER [None]
